FAERS Safety Report 20680284 (Version 3)
Quarter: 2025Q1

REPORT INFORMATION
  Report Type: Spontaneous
  Country: US (occurrence: US)
  Receive Date: 20220406
  Receipt Date: 20250226
  Transmission Date: 20250408
  Serious: Yes (Hospitalization, Other)
  Sender: UCB
  Company Number: US-UCBSA-2022018861

PATIENT
  Age: 13 Year
  Sex: Male
  Weight: 31 kg

DRUGS (5)
  1. LEVETIRACETAM [Suspect]
     Active Substance: LEVETIRACETAM
     Indication: Seizure
     Dosage: 950 MILLIGRAM, 2X/DAY (BID)
     Dates: start: 20211108, end: 20211110
  2. LEVETIRACETAM [Suspect]
     Active Substance: LEVETIRACETAM
     Route: 042
     Dates: start: 20211108, end: 20211108
  3. CLOBAZAM [Concomitant]
     Active Substance: CLOBAZAM
     Indication: Seizure
     Dosage: 10 MILLIGRAM, ONCE DAILY (QD)
  4. VANCOMYCIN [Concomitant]
     Active Substance: VANCOMYCIN
     Indication: Prophylaxis
     Dates: start: 202111, end: 202111
  5. CEFTRIAXONE [Concomitant]
     Active Substance: CEFTRIAXONE
     Indication: Prophylaxis
     Dates: start: 202111, end: 202111

REACTIONS (3)
  - Abnormal behaviour [Recovered/Resolved]
  - Agitation [Recovered/Resolved]
  - Aggression [Recovered/Resolved]

NARRATIVE: CASE EVENT DATE: 20211108
